FAERS Safety Report 6404906-3 (Version None)
Quarter: 2009Q4

REPORT INFORMATION
  Report Type: 
  Country: None (occurrence: None)
  Receive Date: 20091013
  Receipt Date: 20091001
  Transmission Date: 20100525
  Serious: Yes (Other)
  Sender: FDA-Public Use
  Company Number: 2009SP028557

PATIENT
  Age: 32 Year
  Sex: Female

DRUGS (3)
  1. NUVARING [Suspect]
     Indication: CONTRACEPTION
     Dosage: VAG
     Route: 067
  2. DICLOFENAC SODIUM [Suspect]
     Dosage: PO
     Route: 048
  3. MONUROL [Suspect]
     Dosage: PO
     Route: 048

REACTIONS (2)
  - DRUG INTERACTION [None]
  - NEPHROLITHIASIS [None]
